FAERS Safety Report 7768621-6 (Version None)
Quarter: 2011Q3

REPORT INFORMATION
  Report Type: 
  Country: None (occurrence: None)
  Receive Date: 20110922
  Receipt Date: 20110407
  Transmission Date: 20111222
  Serious: No
  Sender: FDA-Public Use
  Company Number: US-ASTRAZENECA-2011SE16081

PATIENT
  Age: 56 Year
  Sex: Female
  Weight: 96.6 kg

DRUGS (8)
  1. CLONIZAPAM [Concomitant]
     Indication: ANXIETY
  2. HYDROCHLORIZIDE [Concomitant]
  3. ZOLOFT [Concomitant]
  4. POTASSIUM [Concomitant]
  5. CLONIZAPAM [Concomitant]
  6. SEROQUEL XR [Suspect]
     Route: 048
     Dates: start: 20110316, end: 20110317
  7. SEROQUEL XR [Suspect]
     Indication: DEPRESSION
     Route: 048
  8. SEROQUEL XR [Suspect]
     Route: 048

REACTIONS (11)
  - LETHARGY [None]
  - HYPERHIDROSIS [None]
  - TREMOR [None]
  - FEELING ABNORMAL [None]
  - INSOMNIA [None]
  - DEPRESSION [None]
  - SOCIAL AVOIDANT BEHAVIOUR [None]
  - PALPITATIONS [None]
  - DRUG DOSE OMISSION [None]
  - MENTAL DISORDER [None]
  - DYSARTHRIA [None]
